FAERS Safety Report 8567753 (Version 4)
Quarter: 2013Q2

REPORT INFORMATION
  Report Type: Spontaneous
  Country: US (occurrence: US)
  Receive Date: 20120517
  Receipt Date: 20130514
  Transmission Date: 20140414
  Serious: Yes (Hospitalization)
  Sender: FDA-Public Use
  Company Number: US-ELI_LILLY_AND_COMPANY-US201107006538

PATIENT
  Age: 79 Year
  Sex: Male
  Weight: 54.4 kg

DRUGS (24)
  1. FORTEO [Suspect]
     Indication: OSTEOPOROSIS
     Dosage: 20 UG, QD
     Route: 058
     Dates: start: 201104
  2. FORTEO [Suspect]
     Dosage: 20 UG, QD
  3. FORTEO [Suspect]
     Dosage: 20 UG, QD
  4. FORTEO [Suspect]
     Dosage: 20 UG, QD
  5. FORTEO [Suspect]
     Dosage: 20 UG, QD
  6. FORTEO [Suspect]
     Dosage: 20 UG, QD
  7. FORTEO [Suspect]
     Dosage: 20 UG, QD
  8. PRILOSEC [Concomitant]
     Dosage: 20 MG, QD
  9. CENTRUM SILVER [Concomitant]
  10. CITRACAL [Concomitant]
  11. VITAMIN E [Concomitant]
     Dosage: 400 IU, UNK
  12. NIACIN [Concomitant]
     Dosage: 500 MG, QD
  13. ESTRA                              /00045401/ [Concomitant]
  14. FISH OIL [Concomitant]
     Dosage: 1000 MG, BID
  15. VITAMIN D [Concomitant]
     Dosage: 1000 IU, UNK
  16. MAXIDE [Concomitant]
     Dosage: HALF TABLET, QD
  17. ULTRAM [Concomitant]
     Dosage: 100 MG, TID
  18. OMEPRAZOLE [Concomitant]
  19. HYDROCORTISONE [Concomitant]
     Dosage: UNK, PRN
  20. SYMBICORT [Concomitant]
     Indication: ASTHMA
     Dosage: UNK
  21. VENTOLIN                                /SCH/ [Concomitant]
  22. BUSPIRONE [Concomitant]
     Dosage: 15 MG, QD
  23. MELATONIN [Concomitant]
     Indication: SLEEP DISORDER
     Dosage: 10 MG, EACH EVENING
  24. MIRALAX [Concomitant]
     Dosage: 17 G, QD

REACTIONS (15)
  - Osteoarthritis [Recovered/Resolved]
  - Musculoskeletal disorder [Not Recovered/Not Resolved]
  - Muscular weakness [Not Recovered/Not Resolved]
  - Gait disturbance [Unknown]
  - Back pain [Unknown]
  - Musculoskeletal pain [Unknown]
  - Musculoskeletal discomfort [Unknown]
  - Discomfort [Unknown]
  - Fall [Unknown]
  - Injection site haemorrhage [Unknown]
  - Injection site pain [Unknown]
  - Constipation [Unknown]
  - Incorrect dose administered [Unknown]
  - Drug dose omission [Unknown]
  - Colitis microscopic [Unknown]
